FAERS Safety Report 7122187-2 (Version None)
Quarter: 2010Q4

REPORT INFORMATION
  Report Type: 
  Country: None (occurrence: None)
  Receive Date: 20101124
  Receipt Date: 20101112
  Transmission Date: 20110411
  Serious: Yes (Other)
  Sender: FDA-Public Use
  Company Number: US-ELI_LILLY_AND_COMPANY-US201010001574

PATIENT
  Age: 55 Year
  Sex: Female

DRUGS (7)
  1. BYETTA [Suspect]
     Indication: TYPE 2 DIABETES MELLITUS
     Dosage: 5 UG, UNK
     Route: 058
     Dates: start: 20100609, end: 20100704
  2. BYETTA [Suspect]
     Dosage: 10 UG, 2/D
     Route: 058
     Dates: start: 20100704, end: 20100915
  3. JANUVIA [Concomitant]
     Indication: TYPE 2 DIABETES MELLITUS
     Dosage: UNK, UNK
     Dates: start: 20080103
  4. ACTOS [Concomitant]
     Dates: start: 20100907
  5. GLIMEPIRIDE [Concomitant]
     Dates: start: 20080108
  6. METFORMIN [Concomitant]
     Dates: start: 20071024
  7. GLYSET [Concomitant]
     Dates: start: 20100917

REACTIONS (5)
  - ABDOMINAL PAIN [None]
  - GLYCOSYLATED HAEMOGLOBIN INCREASED [None]
  - INFECTION [None]
  - RENAL IMPAIRMENT [None]
  - URTICARIA [None]
